FAERS Safety Report 10160917 (Version 1)
Quarter: 2014Q2

REPORT INFORMATION
  Report Type: Spontaneous
  Country: GB (occurrence: GB)
  Receive Date: 20140508
  Receipt Date: 20140508
  Transmission Date: 20141212
  Serious: Yes (Hospitalization, Other)
  Sender: FDA-Public Use
  Company Number: GB-BAUSCH-BL-2014-002228

PATIENT
  Age: 55 Year
  Sex: Female

DRUGS (17)
  1. PREDNISOLONE [Suspect]
     Indication: DIFFUSE LARGE B-CELL LYMPHOMA
     Dosage: 40 MG/M2 DAYS 1-5 EVERY 21 DAYS
     Route: 048
     Dates: start: 20100225
  2. AVASTIN [Suspect]
     Indication: DIFFUSE LARGE B-CELL LYMPHOMA
     Dates: start: 20100225, end: 20100415
  3. AVASTIN [Suspect]
  4. CYCLOPHOSPHAMIDE [Suspect]
     Indication: DIFFUSE LARGE B-CELL LYMPHOMA
     Dosage: 750 MG/M2 EVERY 21 DAYS
     Dates: start: 20100225
  5. DOXORUBICIN [Suspect]
     Indication: DIFFUSE LARGE B-CELL LYMPHOMA
     Dosage: 50 MG/M2 EVERY 21 DAYS
     Dates: start: 20100225
  6. MABTHERA [Suspect]
     Indication: DIFFUSE LARGE B-CELL LYMPHOMA
     Dosage: 375 MG/M2 EVERY 21 DAYS
  7. VINCRISTINE [Suspect]
     Indication: DIFFUSE LARGE B-CELL LYMPHOMA
     Dosage: 1.4 MG/ME EVERY 21 DAYS
     Dates: start: 20100225
  8. ALLOPURINOL [Concomitant]
     Indication: PRODUCT USED FOR UNKNOWN INDICATION
  9. CALCIUM ALGINATE [Concomitant]
     Indication: PRODUCT USED FOR UNKNOWN INDICATION
  10. CARBOXYMETHYLCELLULOSE SODIUM [Concomitant]
     Indication: PRODUCT USED FOR UNKNOWN INDICATION
  11. CO-CODAMOL [Concomitant]
     Indication: PRODUCT USED FOR UNKNOWN INDICATION
  12. CO-TRIMOXAZOLE [Concomitant]
     Indication: PRODUCT USED FOR UNKNOWN INDICATION
  13. GABAPENTIN [Concomitant]
     Indication: PRODUCT USED FOR UNKNOWN INDICATION
  14. IBUPROFEN [Concomitant]
     Indication: PRODUCT USED FOR UNKNOWN INDICATION
  15. LANSOPRAZOLE [Concomitant]
     Indication: PRODUCT USED FOR UNKNOWN INDICATION
  16. RAMIPRIL [Concomitant]
     Indication: PRODUCT USED FOR UNKNOWN INDICATION
  17. HYDROCODONE [Concomitant]

REACTIONS (3)
  - Hypertension [Recovered/Resolved with Sequelae]
  - Left ventricular dysfunction [Recovered/Resolved]
  - Vomiting [Recovered/Resolved with Sequelae]
